FAERS Safety Report 6992482-6 (Version None)
Quarter: 2010Q3

REPORT INFORMATION
  Report Type: 
  Country: None (occurrence: None)
  Receive Date: 20100917
  Receipt Date: 20100906
  Transmission Date: 20110219
  Serious: Yes (Hospitalization, Other)
  Sender: FDA-Public Use
  Company Number: AT-ELI_LILLY_AND_COMPANY-AT201009001250

PATIENT
  Age: 72 Year
  Sex: Female
  Weight: 58 kg

DRUGS (4)
  1. GEMCITABINE HCL [Suspect]
     Indication: BREAST CANCER METASTATIC
     Dosage: 1000 MG/M2, D1 AND D8 EVERY 21 DAYS
     Route: 042
     Dates: start: 20100702
  2. GEMCITABINE HCL [Suspect]
     Dosage: 750 MG/M2, UNKNOWN
     Route: 042
     Dates: start: 20100820
  3. B9E-NONLILLY STUDY [Suspect]
     Indication: BREAST CANCER METASTATIC
     Dosage: 1000 MG/M2, ON D1 EVERY 21 DAYS
     Route: 042
     Dates: start: 20100702
  4. B9E-NONLILLY STUDY [Suspect]
     Dosage: 280 MG/M2, UNKNOWN
     Route: 042
     Dates: start: 20100813

REACTIONS (4)
  - ANAEMIA [None]
  - BLOOD BILIRUBIN INCREASED [None]
  - LUNG INFILTRATION [None]
  - PULMONARY EMBOLISM [None]
